FAERS Safety Report 8805269 (Version 2)
Quarter: 2015Q2

REPORT INFORMATION
  Report Type: Report from Study
  Country: US (occurrence: US)
  Receive Date: 20120924
  Receipt Date: 20150616
  Transmission Date: 20150821
  Serious: Yes (Death)
  Sender: FDA-Public Use
  Company Number: US-ROCHE-1125820

PATIENT
  Age: 79 Year
  Sex: Male

DRUGS (12)
  1. CALCIUM LEUCOVORIN [Concomitant]
     Active Substance: LEUCOVORIN CALCIUM
     Route: 042
  2. TYLENOL [Concomitant]
     Active Substance: ACETAMINOPHEN
     Route: 048
  3. ATIVAN [Concomitant]
     Active Substance: LORAZEPAM
     Indication: ANXIETY
     Dosage: PRN
     Route: 065
  4. TAGAMET [Concomitant]
     Active Substance: CIMETIDINE
     Route: 042
  5. ARANESP [Concomitant]
     Active Substance: DARBEPOETIN ALFA
     Route: 065
  6. GEMZAR [Concomitant]
     Active Substance: GEMCITABINE HYDROCHLORIDE
     Route: 042
  7. IRINOTECAN [Concomitant]
     Active Substance: IRINOTECAN
  8. ALOXI [Concomitant]
     Active Substance: PALONOSETRON HYDROCHLORIDE
     Route: 042
  9. AVASTIN [Suspect]
     Active Substance: BEVACIZUMAB
     Indication: OESOPHAGEAL CARCINOMA
     Route: 042
     Dates: start: 20050719
  10. BENADRYL [Concomitant]
     Active Substance: DIPHENHYDRAMINE HYDROCHLORIDE
     Route: 042
  11. 5-FLUOROURACIL [Concomitant]
     Active Substance: FLUOROURACIL
     Route: 042
  12. MEGACE [Concomitant]
     Active Substance: MEGESTROL ACETATE
     Route: 048

REACTIONS (9)
  - Lymphadenopathy [Unknown]
  - Disease progression [Unknown]
  - Pain [Recovered/Resolved]
  - Metastases to liver [Unknown]
  - Off label use [Unknown]
  - Decreased appetite [Unknown]
  - Death [Fatal]
  - Anxiety [Unknown]
  - Pneumonitis [Unknown]

NARRATIVE: CASE EVENT DATE: 20051027
